FAERS Safety Report 13525137 (Version 1)
Quarter: 2017Q2

REPORT INFORMATION
  Report Type: Spontaneous
  Country: US (occurrence: US)
  Receive Date: 20170508
  Receipt Date: 20170508
  Transmission Date: 20170830
  Serious: No
  Sender: FDA-Public Use
  Company Number: US-ROCHE-1194710

PATIENT
  Age: 46 Year
  Sex: Female

DRUGS (6)
  1. GEMCITABINE [Suspect]
     Active Substance: GEMCITABINE\GEMCITABINE HYDROCHLORIDE
     Route: 065
     Dates: start: 201109
  2. BEVACIZUMAB [Suspect]
     Active Substance: BEVACIZUMAB
     Indication: SMALL INTESTINE ADENOCARCINOMA
     Route: 065
     Dates: start: 201101, end: 201107
  3. BEVACIZUMAB [Suspect]
     Active Substance: BEVACIZUMAB
     Route: 065
     Dates: start: 201109
  4. IRINOTECAN [Concomitant]
     Active Substance: IRINOTECAN
  5. GEMCITABINE [Suspect]
     Active Substance: GEMCITABINE\GEMCITABINE HYDROCHLORIDE
     Indication: SMALL INTESTINE ADENOCARCINOMA
     Route: 065
     Dates: start: 201101, end: 201107
  6. CETUXIMAB. [Concomitant]
     Active Substance: CETUXIMAB

REACTIONS (1)
  - Mycobacterium avium complex infection [Unknown]
